FAERS Safety Report 5258970-8 (Version None)
Quarter: 2007Q1

REPORT INFORMATION
  Report Type: 
  Country: None (occurrence: None)
  Receive Date: 20061117
  Receipt Date: 20060118
  Transmission Date: 20070707
  Serious: Yes (Hospitalization, Other)
  Sender: FDA-Public Use
  Company Number: US-JNJFOC-20051101786

PATIENT
  Age: 42 Year
  Sex: Male
  Weight: 86.1834 kg

DRUGS (2)
  1. LEVAQUIN [Suspect]
     Indication: PROSTATITIS
     Dosage: 500 MG, 1 IN 1 DAY, ORAL
     Route: 048
     Dates: start: 20050701, end: 20050701
  2. LEVAQUIN [Suspect]
     Indication: PROSTATITIS
     Dosage: INTRAVENOUS
     Route: 042
     Dates: start: 20050701, end: 20050701

REACTIONS (1)
  - TENDON RUPTURE [None]
